FAERS Safety Report 9775471 (Version 1)
Quarter: 2013Q4

REPORT INFORMATION
  Report Type: Spontaneous
  Country: US (occurrence: US)
  Receive Date: 20131220
  Receipt Date: 20131220
  Transmission Date: 20140711
  Serious: No
  Sender: FDA-Public Use
  Company Number: US-GALDERMA-US13003477

PATIENT
  Age: 32 Year
  Sex: Female

DRUGS (7)
  1. MIRVASO (BRIMONIDINE) TOPICAL GEL, 0.33% [Suspect]
     Indication: ROSACEA
     Dosage: 0.33%
     Route: 061
     Dates: start: 20131030, end: 20131103
  2. ACZONE (DAPSONE) GEL [Concomitant]
     Indication: ACNE
     Route: 061
     Dates: start: 20131030
  3. SKIN CARE LABS FOAMING CLEANSER [Concomitant]
     Indication: THERAPEUTIC SKIN CARE TOPICAL
     Route: 061
     Dates: start: 20131030
  4. SKIN CARE LABS MOISTURIZER [Concomitant]
     Indication: DRY SKIN PROPHYLAXIS
     Route: 061
     Dates: start: 20131030
  5. SKIN CARE LABS MOISTURE GEL WITH BENEFITS [Concomitant]
     Route: 061
     Dates: start: 20131030
  6. SKIN CARE LABS SKIN CARE TRIFECTA [Concomitant]
     Route: 061
     Dates: start: 20131030
  7. DORYX [Concomitant]
     Indication: ACNE
     Route: 048
     Dates: start: 20131030

REACTIONS (6)
  - Pallor [Recovered/Resolved]
  - Condition aggravated [Recovered/Resolved]
  - Feeling hot [Recovered/Resolved]
  - Erythema [Recovered/Resolved]
  - Pain of skin [Recovered/Resolved]
  - Flushing [Recovered/Resolved]
